FAERS Safety Report 21807064 (Version 3)
Quarter: 2023Q1

REPORT INFORMATION
  Report Type: Spontaneous
  Country: ZA (occurrence: ZA)
  Receive Date: 20230102
  Receipt Date: 20230119
  Transmission Date: 20230418
  Serious: Yes (Death)
  Sender: FDA-Public Use
  Company Number: ZA-009507513-2212ZAF011351

PATIENT
  Age: 76 Year
  Sex: Male

DRUGS (1)
  1. KEYTRUDA [Suspect]
     Active Substance: PEMBROLIZUMAB
     Indication: Oesophageal carcinoma
     Dosage: 200 MILLIGRAM, Q21 3 CYCLES
     Dates: start: 20221101, end: 20221215

REACTIONS (3)
  - Lower respiratory tract infection [Fatal]
  - Haemoptysis [Fatal]
  - Product use issue [Unknown]

NARRATIVE: CASE EVENT DATE: 20220101
